FAERS Safety Report 4865383-7 (Version None)
Quarter: 2005Q4

REPORT INFORMATION
  Report Type: 
  Country: None (occurrence: None)
  Receive Date: 20051223
  Receipt Date: 20051209
  Transmission Date: 20060501
  Serious: Yes (Death, Hospitalization, Other)
  Sender: FDA-Public Use
  Company Number: US-AMGEN-STX160935

PATIENT
  Sex: Male

DRUGS (3)
  1. ENBREL [Suspect]
     Indication: RHEUMATOID ARTHRITIS
     Dates: start: 20030101, end: 20050601
  2. SULFASALAZINE [Concomitant]
  3. PREDNISONE 50MG TAB [Concomitant]

REACTIONS (2)
  - RESPIRATORY TRACT INFECTION [None]
  - THERAPEUTIC RESPONSE DECREASED [None]
